FAERS Safety Report 7784642-1 (Version None)
Quarter: 2011Q3

REPORT INFORMATION
  Report Type: 
  Country: None (occurrence: None)
  Receive Date: 20110928
  Receipt Date: 20110926
  Transmission Date: 20111222
  Serious: Yes (Hospitalization, Other)
  Sender: FDA-Public Use
  Company Number: US-TEVA-302550USA

PATIENT
  Age: 28 Year
  Sex: Female

DRUGS (1)
  1. DIPHENHYDRAMINE HCL [Suspect]

REACTIONS (4)
  - COMPARTMENT SYNDROME [None]
  - SUICIDE ATTEMPT [None]
  - RHABDOMYOLYSIS [None]
  - OVERDOSE [None]
